FAERS Safety Report 8117165-0 (Version None)
Quarter: 2012Q1

REPORT INFORMATION
  Report Type: 
  Country: None (occurrence: None)
  Receive Date: 20120206
  Receipt Date: 20120130
  Transmission Date: 20120608
  Serious: Yes (Other)
  Sender: FDA-Public Use
  Company Number: DE-AMGEN-DEUSP2011047995

PATIENT
  Age: 75 Year
  Sex: Female
  Weight: 74 kg

DRUGS (13)
  1. ASPIRIN [Concomitant]
     Dosage: UNK UNK, QD
  2. PANTOPRAZOLE [Concomitant]
     Dosage: UNK UNK, QD
  3. ARANESP [Suspect]
     Indication: RENAL FAILURE
     Dosage: 60 MUG, QWK
     Route: 042
     Dates: end: 20110718
  4. LEVOTHYROXINE SODIUM [Concomitant]
     Indication: THYROID DISORDER
     Dosage: UNK UNK, QD
  5. DREISAVIT N [Concomitant]
     Dosage: UNK UNK, QD
  6. MAGNESIOCARD [Concomitant]
     Indication: MUSCLE SPASMS
     Dosage: 2.5 MMOL, UNK
  7. ZOPICLON [Concomitant]
     Indication: SLEEP DISORDER
     Dosage: 7.5 MG, QD
  8. RETACRIT [Concomitant]
     Dosage: 5000 IU, 3 TIMES/WK
     Route: 042
  9. METOPROLOL TARTRATE AND HYDROCHLOROTHIAZIDE [Concomitant]
     Indication: BLOOD PRESSURE
     Dosage: 47.5 MG, QD
  10. CALCITRIOL [Concomitant]
     Dosage: 0.25 MUG, QD
  11. VITAMIN B-12 [Concomitant]
     Dosage: 1000 MUG, QMO
     Route: 042
  12. FOL [Concomitant]
     Dosage: 5 MG, UNK
     Route: 042
  13. RENAGEL [Concomitant]
     Indication: BLOOD PHOSPHORUS
     Dosage: 800 MG, TID

REACTIONS (5)
  - DRUG INEFFECTIVE [None]
  - INFLUENZA LIKE ILLNESS [None]
  - ANAEMIA MACROCYTIC [None]
  - THERAPEUTIC RESPONSE DECREASED [None]
  - LEUKOPENIA [None]
